FAERS Safety Report 8572531-4 (Version None)
Quarter: 2012Q3

REPORT INFORMATION
  Report Type: 
  Country: None (occurrence: None)
  Receive Date: 20120806
  Receipt Date: 20120725
  Transmission Date: 20120928
  Serious: Yes (Hospitalization)
  Sender: FDA-Public Use
  Company Number: US-BAYER-2012-076250

PATIENT
  Age: 37 Year
  Sex: Female
  Weight: 118.82 kg

DRUGS (18)
  1. MORPHINE SULFATE [Concomitant]
     Indication: PAIN
     Dosage: 15 MG ER, ONCE TWICE A DAY
     Route: 048
     Dates: start: 20110823
  2. CIPROFLOXACIN [Concomitant]
  3. LISINOPRILHYDROCHLOROTHIAZIDE RATIOPHARM [Concomitant]
  4. NORCO [Concomitant]
  5. OMEPRAZOLE [Concomitant]
  6. PREDNISONE [Concomitant]
  7. ONDANSETRON [Concomitant]
  8. DROSPIRENONE AND ETHINYL ESTRADIOL [Suspect]
     Dosage: UNK
     Dates: start: 20090508, end: 20111015
  9. HYDROCODONE BITARTRATE + ACETAMINOPHEN [Concomitant]
     Dosage: 10-325 MG
     Route: 048
     Dates: start: 20110823, end: 20111024
  10. GABAPENTIN [Concomitant]
  11. NAPROXEN [Concomitant]
  12. YASMIN [Suspect]
     Dosage: UNK
     Dates: start: 20090508, end: 20111015
  13. HYDROCODONE BITARTRATE + ACETAMINOPHEN [Concomitant]
     Dosage: 5-500 MG
     Route: 048
     Dates: start: 20110803
  14. HIBICLENS [Concomitant]
  15. LIDOCAINE [Concomitant]
     Dosage: 2 %, UNK
     Dates: start: 20110823
  16. EPIPEN [Concomitant]
  17. QVAR 40 [Concomitant]
  18. PROVENTIL [Concomitant]

REACTIONS (6)
  - ATELECTASIS [None]
  - PAIN IN EXTREMITY [None]
  - PULMONARY EMBOLISM [None]
  - PULMONARY ARTERIAL HYPERTENSION [None]
  - DYSPNOEA [None]
  - THROMBOPHLEBITIS SUPERFICIAL [None]
